FAERS Safety Report 9636802 (Version 29)
Quarter: 2015Q4

REPORT INFORMATION
  Report Type: Report from Study
  Country: CA (occurrence: CA)
  Receive Date: 20131022
  Receipt Date: 20151206
  Transmission Date: 20160305
  Serious: Yes (Hospitalization, Other)
  Sender: FDA-Public Use
  Company Number: CA-ROCHE-1264965

PATIENT
  Age: 53 Year
  Sex: Female
  Weight: 71 kg

DRUGS (28)
  1. CORTISONE [Suspect]
     Active Substance: CORTISONE\HYDROCORTISONE
     Indication: RHEUMATOID ARTHRITIS
     Route: 065
  2. ACTEMRA [Suspect]
     Active Substance: TOCILIZUMAB
     Indication: RHEUMATOID ARTHRITIS
     Dosage: 4 MG/KG
     Route: 042
     Dates: start: 20130724
  3. CHAMPIX [Concomitant]
     Active Substance: VARENICLINE TARTRATE
  4. FOLIC ACID. [Concomitant]
     Active Substance: FOLIC ACID
  5. HYDROXYZINE [Concomitant]
     Active Substance: HYDROXYZINE\HYDROXYZINE HYDROCHLORIDE
  6. ACTEMRA [Suspect]
     Active Substance: TOCILIZUMAB
     Route: 042
     Dates: start: 20141201
  7. ACTEMRA [Suspect]
     Active Substance: TOCILIZUMAB
     Dosage: 8 MG/KG
     Route: 042
     Dates: start: 20130916
  8. ACTEMRA [Suspect]
     Active Substance: TOCILIZUMAB
     Route: 042
     Dates: start: 20140603
  9. RITUXAN [Suspect]
     Active Substance: RITUXIMAB
     Indication: RHEUMATOID ARTHRITIS
     Route: 042
     Dates: start: 20150519
  10. NICODERM CQ [Concomitant]
     Active Substance: NICOTINE
  11. METHYLPREDNISOLONE. [Concomitant]
     Active Substance: METHYLPREDNISOLONE
     Route: 042
     Dates: start: 20150519
  12. SYNTHROID [Concomitant]
     Active Substance: LEVOTHYROXINE SODIUM
  13. INDOMETHACIN. [Concomitant]
     Active Substance: INDOMETHACIN
  14. ACETAMINOPHEN. [Concomitant]
     Active Substance: ACETAMINOPHEN
     Route: 048
     Dates: start: 20150519
  15. ACTEMRA [Suspect]
     Active Substance: TOCILIZUMAB
     Route: 042
     Dates: start: 20141002
  16. PREDNISONE. [Concomitant]
     Active Substance: PREDNISONE
     Route: 065
  17. STATEX (CANADA) [Concomitant]
     Active Substance: MORPHINE SULFATE
  18. METHOTREXATE [Concomitant]
     Active Substance: METHOTREXATE
  19. EMTEC-30 [Concomitant]
  20. ACTEMRA [Suspect]
     Active Substance: TOCILIZUMAB
     Route: 042
     Dates: start: 20150302, end: 20150330
  21. ALENDRONATE [Concomitant]
     Active Substance: ALENDRONATE SODIUM
  22. AERIUS (CANADA) [Concomitant]
  23. ELAVIL [Concomitant]
     Active Substance: AMITRIPTYLINE HYDROCHLORIDE
  24. PENNSAID [Concomitant]
     Active Substance: DICLOFENAC SODIUM
  25. PREDNISONE. [Concomitant]
     Active Substance: PREDNISONE
     Route: 065
  26. SALBUTAMOL [Concomitant]
     Active Substance: ALBUTEROL
  27. FUCIDIN [Concomitant]
     Active Substance: FUSIDIC ACID
  28. DIPHENHYDRAMINE HCL [Concomitant]
     Active Substance: DIPHENHYDRAMINE HYDROCHLORIDE
     Route: 048
     Dates: start: 20150519

REACTIONS (29)
  - Heart rate decreased [Unknown]
  - Arthritis [Unknown]
  - Retroperitoneal lymphadenopathy [Not Recovered/Not Resolved]
  - Splenic infarction [Unknown]
  - Pain [Unknown]
  - Arthralgia [Unknown]
  - Neoplasm [Unknown]
  - Condition aggravated [Not Recovered/Not Resolved]
  - Eye inflammation [Not Recovered/Not Resolved]
  - Bronchitis [Recovering/Resolving]
  - Pain in extremity [Not Recovered/Not Resolved]
  - Stress [Not Recovered/Not Resolved]
  - Headache [Recovered/Resolved]
  - Infusion related reaction [Unknown]
  - Nasopharyngitis [Recovered/Resolved]
  - Rheumatoid arthritis [Unknown]
  - Hypertension [Unknown]
  - Drug effect decreased [Unknown]
  - Splenic infarction [Recovered/Resolved]
  - Insomnia [Unknown]
  - Thrombosis [Recovered/Resolved]
  - Restless legs syndrome [Recovered/Resolved]
  - Anxiety [Unknown]
  - Upper extremity mass [Unknown]
  - Haemoptysis [Recovering/Resolving]
  - Abdominal pain upper [Unknown]
  - Weight decreased [Unknown]
  - Weight increased [Unknown]
  - Joint swelling [Unknown]

NARRATIVE: CASE EVENT DATE: 201310
